FAERS Safety Report 14494028 (Version 2)
Quarter: 2018Q1

REPORT INFORMATION
  Report Type: Spontaneous
  Country: US (occurrence: US)
  Receive Date: 20180206
  Receipt Date: 20180208
  Transmission Date: 20180509
  Serious: Yes (Life-Threatening, Other)
  Sender: FDA-Public Use
  Company Number: US-PFIZER INC-2018049585

PATIENT
  Age: 65 Year
  Sex: Male

DRUGS (13)
  1. RIFAMPIN. [Concomitant]
     Active Substance: RIFAMPIN
     Indication: STAPHYLOCOCCAL INFECTION
  2. GABAPENTIN. [Concomitant]
     Active Substance: GABAPENTIN
     Dosage: UNK
  3. PANTOPRAZOLE [Concomitant]
     Active Substance: PANTOPRAZOLE
     Dosage: UNK
  4. ASPIRIN /00002701/ [Concomitant]
     Active Substance: ASPIRIN
     Dosage: UNK
  5. DAPTOMYCIN. [Suspect]
     Active Substance: DAPTOMYCIN
     Indication: EXTRADURAL ABSCESS
  6. RIFAMPIN. [Concomitant]
     Active Substance: RIFAMPIN
     Indication: OSTEOMYELITIS
     Dosage: UNK
  7. SOTALOL. [Concomitant]
     Active Substance: SOTALOL
     Dosage: UNK
  8. LEVOTHYROXINE. [Concomitant]
     Active Substance: LEVOTHYROXINE
     Dosage: UNK
  9. HEPARIN [Concomitant]
     Active Substance: HEPARIN SODIUM
     Dosage: UNK
     Route: 058
  10. DAPTOMYCIN. [Suspect]
     Active Substance: DAPTOMYCIN
     Indication: STAPHYLOCOCCAL INFECTION
  11. RIFAMPIN. [Concomitant]
     Active Substance: RIFAMPIN
     Indication: EXTRADURAL ABSCESS
  12. ATORVASTATIN [Concomitant]
     Active Substance: ATORVASTATIN
     Dosage: UNK
  13. DAPTOMYCIN. [Suspect]
     Active Substance: DAPTOMYCIN
     Indication: OSTEOMYELITIS
     Dosage: 1000 MG (6 MG/KG), DAILY

REACTIONS (2)
  - Eosinophilic pneumonia [Recovered/Resolved]
  - Acute respiratory failure [Recovered/Resolved]
